FAERS Safety Report 25578122 (Version 1)
Quarter: 2025Q3

REPORT INFORMATION
  Report Type: Spontaneous
  Country: CN (occurrence: CN)
  Receive Date: 20250718
  Receipt Date: 20250718
  Transmission Date: 20251020
  Serious: Yes (Death)
  Sender: AMGEN
  Company Number: CN-AMGEN-CHNSP2025139294

PATIENT

DRUGS (2)
  1. CARFILZOMIB [Suspect]
     Active Substance: CARFILZOMIB
     Indication: Plasma cell myeloma refractory
     Route: 065
  2. CARFILZOMIB [Suspect]
     Active Substance: CARFILZOMIB
     Route: 065

REACTIONS (3)
  - Plasma cell myeloma recurrent [Fatal]
  - Plasma cell myeloma [Fatal]
  - N-terminal prohormone brain natriuretic peptide increased [Recovered/Resolved]
